FAERS Safety Report 20860908 (Version 1)
Quarter: 2022Q2

REPORT INFORMATION
  Report Type: Spontaneous
  Country: US (occurrence: US)
  Receive Date: 20220523
  Receipt Date: 20220523
  Transmission Date: 20220721
  Serious: No
  Sender: FDA-Public Use
  Company Number: US-BRISTOL-MYERS SQUIBB COMPANY-2022-021215

PATIENT
  Age: 67 Year
  Sex: Male
  Weight: 113.4 kg

DRUGS (1)
  1. ELIQUIS [Suspect]
     Active Substance: APIXABAN
     Indication: Cerebrovascular accident prophylaxis
     Route: 048
     Dates: start: 202005, end: 2022

REACTIONS (3)
  - Arthralgia [Recovering/Resolving]
  - Joint stiffness [Recovering/Resolving]
  - Fatigue [Recovering/Resolving]
